FAERS Safety Report 6274232-4 (Version None)
Quarter: 2009Q3

REPORT INFORMATION
  Report Type: 
  Country: None (occurrence: None)
  Receive Date: 20090720
  Receipt Date: 20090714
  Transmission Date: 20100115
  Serious: Yes (Disabling)
  Sender: FDA-Public Use
  Company Number: US-ASTRAZENECA-2009UW14273

PATIENT
  Age: 564 Month
  Sex: Female
  Weight: 84.4 kg

DRUGS (7)
  1. SEROQUEL [Suspect]
     Indication: BIPOLAR II DISORDER
     Route: 048
  2. SEROQUEL [Suspect]
     Route: 048
     Dates: start: 20010601
  3. COGENTIN [Concomitant]
  4. NEURONTIN [Concomitant]
  5. XANAX [Concomitant]
  6. TEGRETOL [Concomitant]
     Route: 048
     Dates: start: 20090401
  7. LITHIUM [Concomitant]
     Dates: start: 20090201, end: 20090401

REACTIONS (1)
  - SOMNAMBULISM [None]
